FAERS Safety Report 8255175-3 (Version None)
Quarter: 2012Q2

REPORT INFORMATION
  Report Type: 
  Country: None (occurrence: None)
  Receive Date: 20120403
  Receipt Date: 20120319
  Transmission Date: 20120825
  Serious: Yes (Disabling)
  Sender: FDA-Public Use
  Company Number: BE-CELGENEUS-013-21880-11103538

PATIENT
  Sex: Female

DRUGS (11)
  1. REVLIMID [Suspect]
     Dosage: 10 MILLIGRAM
     Route: 048
     Dates: start: 20110608, end: 20111101
  2. METOPROLOL SUCCINATE [Concomitant]
     Route: 065
  3. ZOMETA [Suspect]
     Route: 065
     Dates: start: 20100601, end: 20110413
  4. SERTRALINE HYDROCHLORIDE [Concomitant]
     Route: 065
  5. REVLIMID [Suspect]
     Indication: MULTIPLE MYELOMA
     Dosage: 25 MILLIGRAM
     Route: 048
     Dates: start: 20110207, end: 20110608
  6. STEOVIT [Concomitant]
     Route: 065
  7. FENOFIBRATE [Concomitant]
     Route: 065
  8. MARCUMAR [Concomitant]
     Route: 065
  9. ENALAPRIL MALEATE AND HYDROCHLOROTHIAZIDE [Concomitant]
     Route: 065
  10. LORAZEPAM [Concomitant]
     Route: 065
  11. LAROXIN [Concomitant]
     Route: 065

REACTIONS (5)
  - MULTIPLE MYELOMA [None]
  - IMPAIRED HEALING [None]
  - OSTEONECROSIS OF JAW [None]
  - FISTULA [None]
  - HAEMATOTOXICITY [None]
